FAERS Safety Report 9827438 (Version 1)
Quarter: 2013Q4

REPORT INFORMATION
  Report Type: Spontaneous
  Country: US (occurrence: None)
  Receive Date: 20131118
  Receipt Date: 20131118
  Transmission Date: 20140711
  Serious: Yes (Hospitalization)
  Sender: FDA-Public Use
  Company Number: 2012AP003507

PATIENT
  Age: 70 Year
  Sex: Female

DRUGS (6)
  1. TIMOLOL MALEATE [Suspect]
     Indication: OPEN ANGLE GLAUCOMA
  2. HYDROCHLOROTHIAZIDE [Concomitant]
  3. SIMVASTATIN [Concomitant]
  4. LISINOPRIL [Concomitant]
  5. BUPROPION [Concomitant]
  6. BRIMONIDINE [Concomitant]

REACTIONS (3)
  - Sinus bradycardia [None]
  - Atrioventricular block [None]
  - Palpitations [None]
